FAERS Safety Report 5314487-3 (Version None)
Quarter: 2007Q2

REPORT INFORMATION
  Report Type: 
  Country: None (occurrence: None)
  Receive Date: 20070430
  Receipt Date: 20070430
  Transmission Date: 20071010
  Serious: Yes (Other)
  Sender: FDA-Public Use
  Company Number: None

PATIENT
  Age: 52 Year
  Sex: Female
  Weight: 48.0813 kg

DRUGS (1)
  1. ZICAM NO DRIP LIQUID NASAL GEL NORMAL MATRIXX INDUSTRIES INC [Suspect]
     Indication: NASOPHARYNGITIS
     Dosage: ONE DOSE ONCE NASAL
     Route: 045
     Dates: start: 20070424, end: 20070424

REACTIONS (3)
  - AGEUSIA [None]
  - ANOSMIA [None]
  - NASAL DISCOMFORT [None]
